FAERS Safety Report 24954618 (Version 1)
Quarter: 2025Q1

REPORT INFORMATION
  Report Type: Spontaneous
  Country: GB (occurrence: GB)
  Receive Date: 20250211
  Receipt Date: 20250211
  Transmission Date: 20250408
  Serious: Yes (Other)
  Sender: BAYER HEALTHCARE PHARMACEUTICALS INC.
  Company Number: None

PATIENT
  Age: 55 Year
  Sex: Female

DRUGS (2)
  1. ADEMPAS [Suspect]
     Active Substance: RIOCIGUAT
     Indication: Heart disease congenital
     Dosage: 1.5MG - THREE TIMES DAILY
     Dates: start: 20250101
  2. UNSPECIFIED INGREDIENT [Concomitant]
     Active Substance: UNSPECIFIED INGREDIENT

REACTIONS (8)
  - Infection [Unknown]
  - Muscular weakness [Unknown]
  - Cough [Unknown]
  - Pain [Unknown]
  - Feeling cold [Unknown]
  - Feeling abnormal [None]
  - Adverse drug reaction [None]
  - Mobility decreased [None]

NARRATIVE: CASE EVENT DATE: 20250127
